FAERS Safety Report 5225830-8 (Version None)
Quarter: 2007Q1

REPORT INFORMATION
  Report Type: 
  Country: None (occurrence: None)
  Receive Date: 20070130
  Receipt Date: 20070130
  Transmission Date: 20070707
  Serious: Yes (Life-Threatening)
  Sender: FDA-Public Use
  Company Number: None

PATIENT
  Age: 59 Year
  Sex: Male
  Weight: 104 kg

DRUGS (7)
  1. SIMVASTATIN [Suspect]
     Indication: DYSLIPIDAEMIA
     Dosage: 80 MG ONCE DAILY PO
     Route: 048
     Dates: start: 20040101
  2. OMEPRAZOLE [Suspect]
     Indication: GASTROOESOPHAGEAL REFLUX DISEASE
     Dosage: 20 MG TWICE DAILY PO
     Route: 048
     Dates: start: 20060701
  3. LOVASTATIN [Concomitant]
  4. PREDNISOLONE ACETATE [Concomitant]
  5. ISOPTO HOMATROPINE [Concomitant]
  6. METOPROLOL [Concomitant]
  7. ASPIRIN [Concomitant]

REACTIONS (6)
  - HAEMODIALYSIS [None]
  - INFLUENZA LIKE ILLNESS [None]
  - PAIN [None]
  - RENAL FAILURE ACUTE [None]
  - RESPIRATORY FAILURE [None]
  - RHABDOMYOLYSIS [None]
